FAERS Safety Report 6669100 (Version 2)
Quarter: 2014Q4

REPORT INFORMATION
  Report Type: Spontaneous
  Country: US (occurrence: US)
  Receive Date: 20080131
  Receipt Date: 20141205
  Transmission Date: 20150529
  Serious: No
  Sender: FDA-Public Use
  Company Number: US200710005636

PATIENT
  Age: 81 Year
  Sex: Female
  Weight: 58.96 kg

DRUGS (11)
  1. FUROSEMIDE. [Concomitant]
     Active Substance: FUROSEMIDE
  2. EXENATIDE 5MCG PEN, DISPOSABLE DEVICE [Concomitant]
     Active Substance: EXENATIDE
  3. EFIENT [Concomitant]
     Active Substance: PRASUGREL HYDROCHLORIDE
  4. EXENATIDE 5MCG PEN, DISPOSABLE DEVICE [Concomitant]
     Active Substance: EXENATIDE
  5. METOPROLOL [Concomitant]
     Active Substance: METOPROLOL
  6. ECOTRIN [Concomitant]
     Active Substance: ASPIRIN
  7. BYETTA [Suspect]
     Active Substance: EXENATIDE
     Route: 058
     Dates: start: 2006
  8. ENALAPRIL [Concomitant]
     Active Substance: ENALAPRIL
  9. KLOR-CON [Concomitant]
     Active Substance: POTASSIUM CHLORIDE
  10. METFORMIN HCL [Concomitant]
     Active Substance: METFORMIN HYDROCHLORIDE
  11. SIMVASTATIN. [Concomitant]
     Active Substance: SIMVASTATIN

REACTIONS (2)
  - Extra dose administered [Unknown]
  - Drug dose omission [Unknown]

NARRATIVE: CASE EVENT DATE: 20140806
